FAERS Safety Report 8231078-5 (Version None)
Quarter: 2012Q1

REPORT INFORMATION
  Report Type: 
  Country: None (occurrence: None)
  Receive Date: 20120323
  Receipt Date: 20120316
  Transmission Date: 20120608
  Serious: Yes (Hospitalization)
  Sender: FDA-Public Use
  Company Number: US-BAYER-2012-013097

PATIENT
  Age: 31 Year
  Sex: Female
  Weight: 72 kg

DRUGS (9)
  1. IBUPROFEN [Concomitant]
     Indication: ANALGESIC THERAPY
     Dosage: 2 OM
     Route: 048
     Dates: start: 20100601
  2. CLARINEX [Concomitant]
  3. YAZ [Suspect]
     Indication: CONTRACEPTION
     Dosage: UNK
     Dates: start: 20100411, end: 20100601
  4. GLATIRAMER ACETATE [Concomitant]
     Indication: MULTIPLE SCLEROSIS
     Dosage: 20 MG, EVERY NIGHT
     Route: 058
     Dates: start: 20050101
  5. VITAMIN D [Concomitant]
     Indication: VITAMIN SUPPLEMENTATION
     Dosage: 2000 MG, OM
     Route: 048
  6. COPAXONE [Concomitant]
     Indication: MULTIPLE SCLEROSIS
  7. YAZ [Suspect]
     Dosage: UNK
     Dates: start: 20080911, end: 20081231
  8. MULTI-VITAMIN [Concomitant]
     Indication: MEDICAL DIET
     Dosage: 1 OM
     Route: 048
  9. FISH OIL [Concomitant]
     Indication: VITAMIN SUPPLEMENTATION
     Dosage: UNK UNK, OM
     Route: 048

REACTIONS (12)
  - OEDEMA PERIPHERAL [None]
  - GENERAL PHYSICAL HEALTH DETERIORATION [None]
  - PAIN IN EXTREMITY [None]
  - VEIN DISORDER [None]
  - PULMONARY EMBOLISM [None]
  - INJURY [None]
  - LIMB DISCOMFORT [None]
  - DEEP VEIN THROMBOSIS [None]
  - VENOUS INSUFFICIENCY [None]
  - EMOTIONAL DISTRESS [None]
  - ANXIETY [None]
  - PAIN [None]
